FAERS Safety Report 7494534-3 (Version None)
Quarter: 2011Q2

REPORT INFORMATION
  Report Type: 
  Country: None (occurrence: None)
  Receive Date: 20110520
  Receipt Date: 20110509
  Transmission Date: 20111010
  Serious: Yes (Hospitalization, Other)
  Sender: FDA-Public Use
  Company Number: PHHY2010JP71985

PATIENT
  Sex: Male

DRUGS (13)
  1. CELECOXIB [Concomitant]
     Indication: METASTATIC RENAL CELL CARCINOMA
     Dosage: 200 MG, UNK
     Route: 048
     Dates: start: 20101002
  2. AFINITOR [Suspect]
     Dosage: 5 MG, QD
     Route: 048
     Dates: start: 20110105, end: 20110208
  3. PURSENNID [Concomitant]
     Indication: METASTATIC RENAL CELL CARCINOMA
     Dosage: 24 MG, UNK
     Route: 048
     Dates: start: 20101002
  4. SUNITINIB MALATE [Concomitant]
     Indication: METASTATIC RENAL CELL CARCINOMA
     Dosage: 50 MG, UNK
     Route: 048
     Dates: start: 20100216, end: 20100228
  5. SORAFENIB TOSILATE [Concomitant]
     Indication: METASTATIC RENAL CELL CARCINOMA
     Dosage: 600 MG, UNK
     Route: 048
     Dates: start: 20100628, end: 20100726
  6. MAGMITT KENEI [Concomitant]
     Indication: METASTATIC RENAL CELL CARCINOMA
     Dosage: 990 MG, UNK
     Route: 048
     Dates: start: 20101002
  7. AFINITOR [Suspect]
     Dosage: 5 MG, DAILY
     Route: 048
     Dates: start: 20101130
  8. ZOLPIDEM [Concomitant]
     Indication: METASTATIC RENAL CELL CARCINOMA
     Dosage: 10 MG, UNK
     Route: 048
     Dates: start: 20101002
  9. GASLON [Concomitant]
     Indication: METASTATIC RENAL CELL CARCINOMA
     Dosage: 4 MG, UNK
     Route: 048
     Dates: start: 20101002
  10. LENDORMIN [Concomitant]
     Indication: METASTATIC RENAL CELL CARCINOMA
     Dosage: 0.25 MG, UNK
     Route: 048
     Dates: start: 20101002
  11. AFINITOR [Suspect]
     Indication: METASTATIC RENAL CELL CARCINOMA
     Dosage: 10 MG, DAILY
     Route: 048
     Dates: start: 20101005, end: 20101129
  12. DUROTEP JANSSEN [Concomitant]
     Indication: METASTATIC RENAL CELL CARCINOMA
     Dosage: 6.3 MG, UNK
     Dates: start: 20101002
  13. MUCOSTA [Concomitant]
     Indication: METASTATIC RENAL CELL CARCINOMA
     Dosage: 300 MG, UNK
     Route: 048
     Dates: start: 20101130

REACTIONS (6)
  - BLOOD LACTATE DEHYDROGENASE INCREASED [None]
  - ANAEMIA [None]
  - MALAISE [None]
  - LYMPHOCYTE COUNT DECREASED [None]
  - C-REACTIVE PROTEIN INCREASED [None]
  - STOMATITIS [None]
